FAERS Safety Report 19866098 (Version 1)
Quarter: 2021Q3

REPORT INFORMATION
  Report Type: Spontaneous
  Country: BE (occurrence: BE)
  Receive Date: 20210922
  Receipt Date: 20210922
  Transmission Date: 20211014
  Serious: Yes (Life-Threatening, Hospitalization)
  Sender: FDA-Public Use
  Company Number: BE-ROCHE-2914028

PATIENT
  Age: 72 Year
  Sex: Male
  Weight: 71.9 kg

DRUGS (17)
  1. LEVOCETIRIZINE [Concomitant]
     Active Substance: LEVOCETIRIZINE
     Dosage: STRENGTH: 5MG
     Route: 048
     Dates: start: 20210810, end: 20210819
  2. METHYLPREDNISOLONE. [Concomitant]
     Active Substance: METHYLPREDNISOLONE
     Dosage: STRENGTH: 80MG
     Route: 048
     Dates: start: 20210810, end: 20210819
  3. PARACETAMOL [Concomitant]
     Active Substance: ACETAMINOPHEN
     Dosage: STRENGTH: 1GM
     Route: 048
     Dates: start: 20210810, end: 20210819
  4. ACICLOVIR [Concomitant]
     Active Substance: ACYCLOVIR
     Dates: start: 20210803
  5. RITUXIMAB. [Suspect]
     Active Substance: RITUXIMAB
     Indication: PRODUCT USED FOR UNKNOWN INDICATION
     Dosage: (FORM STRENGTH: 375 MILLIGRAM/SQ. METER), 1Q3W
     Route: 042
     Dates: start: 20210803
  6. DOXORUBICIN [Suspect]
     Active Substance: DOXORUBICIN
     Indication: PRODUCT USED FOR UNKNOWN INDICATION
     Dosage: (FORM STRENGTH: 750 MILLIGRAM/SQ. METER)
     Route: 042
     Dates: start: 20210803
  7. SULFAMETHOXAZOLE/TRIMETHOPRIM [Concomitant]
     Active Substance: SULFAMETHOXAZOLE\TRIMETHOPRIM
     Dates: start: 20210804
  8. METHYLPREDNISOLONE. [Concomitant]
     Active Substance: METHYLPREDNISOLONE
     Dates: start: 20210729, end: 20210802
  9. PREDNISONE. [Suspect]
     Active Substance: PREDNISONE
     Dosage: (FORM STRENGTH: 80 MILLIGRAM)
     Route: 048
     Dates: start: 20210804
  10. CLEXANE [Concomitant]
     Active Substance: ENOXAPARIN SODIUM
     Dates: start: 20210726
  11. CRESTOR [Concomitant]
     Active Substance: ROSUVASTATIN CALCIUM
     Dates: start: 2021
  12. COLECALCIFEROL [Concomitant]
     Active Substance: CHOLECALCIFEROL
     Dates: start: 2021
  13. VINCRISTINE [Suspect]
     Active Substance: VINCRISTINE
     Indication: PRODUCT USED FOR UNKNOWN INDICATION
     Dosage: (FORM STRENGTH: 1.4 MILLIGRAM/SQ. METER), 1Q3W
     Route: 042
     Dates: start: 20210803
  14. CYCLOPHOSPHAMIDE. [Suspect]
     Active Substance: CYCLOPHOSPHAMIDE
     Indication: PRODUCT USED FOR UNKNOWN INDICATION
     Dosage: (FORM STRENGTH: 750 MILLIGRAM/SQ. METER) 1Q3W
     Route: 042
     Dates: start: 20210803
  15. PREDNISONE. [Suspect]
     Active Substance: PREDNISONE
     Indication: PRODUCT USED FOR UNKNOWN INDICATION
     Dosage: (FORM STRENGTH: 80 MILLIGRAM), QD
     Route: 048
     Dates: start: 20210803, end: 20210803
  16. ASAFLOW [Concomitant]
     Active Substance: ASPIRIN
     Dates: start: 2021
  17. FENOFIBRATE. [Concomitant]
     Active Substance: FENOFIBRATE
     Dates: start: 2021

REACTIONS (2)
  - Febrile neutropenia [Not Recovered/Not Resolved]
  - Cytokine release syndrome [Recovered/Resolved]

NARRATIVE: CASE EVENT DATE: 20210811
